FAERS Safety Report 7069604-4 (Version None)
Quarter: 2010Q4

REPORT INFORMATION
  Report Type: 
  Country: None (occurrence: None)
  Receive Date: 20101028
  Receipt Date: 20100420
  Transmission Date: 20110411
  Serious: No
  Sender: FDA-Public Use
  Company Number: US-WYE-H14675310

PATIENT
  Age: 75 Year
  Sex: Male

DRUGS (1)
  1. AMIODARONE [Suspect]
     Indication: CARDIAC DISORDER
     Dosage: UNKNOWN

REACTIONS (1)
  - SKIN DISCOLOURATION [None]
